FAERS Safety Report 5296224-4 (Version None)
Quarter: 2007Q2

REPORT INFORMATION
  Report Type: 
  Country: None (occurrence: None)
  Receive Date: 20070413
  Receipt Date: 20070411
  Transmission Date: 20071010
  Serious: Yes (Life-Threatening)
  Sender: FDA-Public Use
  Company Number: JP-JPN-A200701636

PATIENT
  Age: 66 Year
  Sex: Male

DRUGS (8)
  1. PAXIL [Suspect]
     Indication: DRUG USE FOR UNKNOWN INDICATION
     Dosage: 20MG PER DAY
     Route: 048
     Dates: start: 20070329, end: 20070404
  2. DEPAS [Suspect]
     Indication: DRUG USE FOR UNKNOWN INDICATION
     Dosage: 1MG UNKNOWN
     Route: 048
  3. ZYRTEC [Concomitant]
     Dosage: 10MG UNKNOWN
     Route: 048
  4. NAUZELIN [Concomitant]
     Route: 065
  5. FULCALIQ [Concomitant]
  6. VEEN-D [Concomitant]
  7. AMINO ACID INJ [Concomitant]
  8. INTRAFAT [Concomitant]

REACTIONS (7)
  - DYSARTHRIA [None]
  - EXTRAPYRAMIDAL DISORDER [None]
  - MALAISE [None]
  - MUSCULAR WEAKNESS [None]
  - PYREXIA [None]
  - THIRST [None]
  - TREMOR [None]
